FAERS Safety Report 8088393-8 (Version None)
Quarter: 2012Q1

REPORT INFORMATION
  Report Type: 
  Country: None (occurrence: None)
  Receive Date: 20120128
  Receipt Date: 20110531
  Transmission Date: 20120608
  Serious: No
  Sender: FDA-Public Use
  Company Number: US-ABBOTT-11P-163-0729437-00

PATIENT
  Sex: Female

DRUGS (4)
  1. HUMIRA [Suspect]
     Indication: CROHN'S DISEASE
     Dates: start: 20101118, end: 20110301
  2. ORTHO TRI-CYCLEN [Concomitant]
     Indication: PRODUCT USED FOR UNKNOWN INDICATION
  3. APRISO [Suspect]
     Indication: PRODUCT USED FOR UNKNOWN INDICATION
  4. MULTI-VITAMIN [Concomitant]
     Indication: PRODUCT USED FOR UNKNOWN INDICATION

REACTIONS (1)
  - HEADACHE [None]
